FAERS Safety Report 11295031 (Version 2)
Quarter: 2015Q4

REPORT INFORMATION
  Report Type: Report from Study
  Country: GB (occurrence: GB)
  Receive Date: 20150723
  Receipt Date: 20151006
  Transmission Date: 20160304
  Serious: Yes (Death, Hospitalization)
  Sender: FDA-Public Use
  Company Number: GB-AMGEN-GBRNI2015073942

PATIENT
  Age: 77 Year
  Sex: Female
  Weight: 80 kg

DRUGS (1)
  1. ETANERCEPT [Suspect]
     Active Substance: ETANERCEPT
     Indication: RHEUMATOID ARTHRITIS
     Dosage: 25 MG, 2X/WEEK
     Route: 065
     Dates: start: 20140815

REACTIONS (2)
  - Localised infection [Fatal]
  - Cellulitis [Fatal]

NARRATIVE: CASE EVENT DATE: 20141027
